FAERS Safety Report 7008427-9 (Version None)
Quarter: 2010Q3

REPORT INFORMATION
  Report Type: 
  Country: None (occurrence: None)
  Receive Date: 20100922
  Receipt Date: 20100914
  Transmission Date: 20110219
  Serious: Yes (Hospitalization, Other)
  Sender: FDA-Public Use
  Company Number: US-ABBOTT-10P-163-0671085-00

PATIENT
  Sex: Female
  Weight: 72.64 kg

DRUGS (20)
  1. HUMIRA [Suspect]
     Indication: RHEUMATOID ARTHRITIS
     Dates: start: 20100617
  2. ACTOS [Concomitant]
     Indication: DIABETES MELLITUS
  3. METFORMIN [Concomitant]
     Indication: DIABETES MELLITUS
  4. LISINOPRIL [Concomitant]
     Indication: HYPERTENSION
  5. JANUVIA [Concomitant]
     Indication: DIABETES MELLITUS
     Dates: start: 20100903
  6. FERROUS SULFATE [Concomitant]
     Indication: ANAEMIA
  7. CRESTOR [Concomitant]
     Indication: BLOOD CHOLESTEROL INCREASED
  8. FOLIC ACID [Concomitant]
     Indication: PRODUCT USED FOR UNKNOWN INDICATION
  9. PREDNISONE [Concomitant]
     Indication: PRODUCT USED FOR UNKNOWN INDICATION
  10. NIFEDIPINE [Concomitant]
     Indication: HYPERTENSION
  11. LEFLUNOMIDE [Concomitant]
     Indication: RHEUMATOID ARTHRITIS
  12. ACTONEL [Concomitant]
     Indication: OSTEOPOROSIS
  13. CENTRUM SILVER [Concomitant]
     Indication: VITAMIN SUPPLEMENTATION
  14. CALCIUM D [Concomitant]
     Indication: PRODUCT USED FOR UNKNOWN INDICATION
  15. VITAMIN D [Concomitant]
     Indication: PRODUCT USED FOR UNKNOWN INDICATION
  16. TYLENOL W/ CODEINE NO. 3 [Concomitant]
     Indication: MUSCLE SPASMS
  17. SKELAXIN [Concomitant]
     Indication: MUSCLE SPASMS
  18. MINI DROPS [Concomitant]
     Indication: DRY EYE
  19. FML [Concomitant]
     Indication: DRY EYE
     Route: 047
  20. FLUTICASONE PROPIONATE [Concomitant]
     Indication: HYPERSENSITIVITY
     Route: 045

REACTIONS (5)
  - BLOOD GLUCOSE INCREASED [None]
  - DYSPNOEA [None]
  - INJECTION SITE PAIN [None]
  - LUNG INFECTION [None]
  - PLEURAL EFFUSION [None]
